FAERS Safety Report 16982715 (Version 1)
Quarter: 2019Q4

REPORT INFORMATION
  Report Type: Spontaneous
  Country: KW (occurrence: KW)
  Receive Date: 20191101
  Receipt Date: 20191101
  Transmission Date: 20200122
  Serious: Yes (Other)
  Sender: FDA-Public Use
  Company Number: KW-SUN PHARMACEUTICAL INDUSTRIES LTD-2019RR-226294

PATIENT
  Age: 8 Year
  Sex: Male
  Weight: 24 kg

DRUGS (6)
  1. ARIPIPRAZOLE. [Suspect]
     Active Substance: ARIPIPRAZOLE
     Indication: SELF-INJURIOUS IDEATION
     Dosage: 7.5 MILLIGRAM, DAILY
     Route: 065
  2. RISPERIDONE. [Suspect]
     Active Substance: RISPERIDONE
     Indication: SELF-INJURIOUS IDEATION
     Dosage: 2 MILLIGRAM, DAILY
     Route: 065
  3. NALTREXONE [Suspect]
     Active Substance: NALTREXONE
     Indication: INTENTIONAL SELF-INJURY
     Dosage: 12.5 MILLIGRAM, DAILY
     Route: 065
  4. SERTRALINE [Suspect]
     Active Substance: SERTRALINE HYDROCHLORIDE
     Indication: SELF-INJURIOUS IDEATION
     Dosage: 20 MILLIGRAM, DAILY
     Route: 065
  5. CLONIDINE. [Suspect]
     Active Substance: CLONIDINE
     Indication: SELF-INJURIOUS IDEATION
     Dosage: 300 MICROGRAM, DAILY
     Route: 065
  6. CLONAZEPAM. [Suspect]
     Active Substance: CLONAZEPAM
     Indication: SELF-INJURIOUS IDEATION
     Dosage: 1.5 MILLIGRAM, DAILY
     Route: 065

REACTIONS (8)
  - Drug ineffective [Unknown]
  - Hyperprolactinaemia [Unknown]
  - Weight increased [Unknown]
  - Tremor [Unknown]
  - Presyncope [Unknown]
  - Salivary hypersecretion [Unknown]
  - Transaminases increased [Unknown]
  - Agitation [Unknown]
